FAERS Safety Report 6184950-4 (Version None)
Quarter: 2009Q2

REPORT INFORMATION
  Report Type: 
  Country: None (occurrence: None)
  Receive Date: 20090511
  Receipt Date: 20080908
  Transmission Date: 20091009
  Serious: No
  Sender: FDA-Public Use
  Company Number: A0747824A

PATIENT
  Sex: Female

DRUGS (1)
  1. RELAFEN [Suspect]
     Indication: DRUG USE FOR UNKNOWN INDICATION
     Route: 048

REACTIONS (6)
  - ABASIA [None]
  - ARTHRALGIA [None]
  - BURNING SENSATION [None]
  - JOINT STIFFNESS [None]
  - JOINT SWELLING [None]
  - PYREXIA [None]
